FAERS Safety Report 6284028-5 (Version None)
Quarter: 2009Q3

REPORT INFORMATION
  Report Type: 
  Country: None (occurrence: None)
  Receive Date: 20090727
  Receipt Date: 20090717
  Transmission Date: 20100115
  Serious: Yes (Hospitalization)
  Sender: FDA-Public Use
  Company Number: US-BIOGENIDEC-2008BI001688

PATIENT
  Age: 69 Year
  Sex: Male
  Weight: 81 kg

DRUGS (2)
  1. AVONEX [Suspect]
     Indication: MULTIPLE SCLEROSIS
     Route: 030
     Dates: start: 19960101, end: 20030101
  2. AVONEX [Suspect]
     Route: 030
     Dates: start: 20030101, end: 20090101

REACTIONS (6)
  - MALAISE [None]
  - MOBILITY DECREASED [None]
  - PAIN [None]
  - POST PROCEDURAL COMPLICATION [None]
  - TRIGEMINAL NEURALGIA [None]
  - WEIGHT DECREASED [None]
